FAERS Safety Report 24075697 (Version 1)
Quarter: 2024Q3

REPORT INFORMATION
  Report Type: Spontaneous
  Country: US (occurrence: US)
  Receive Date: 20240710
  Receipt Date: 20240710
  Transmission Date: 20241017
  Serious: Yes (Death, Other)
  Sender: RANBAXY
  Company Number: US-SUN PHARMACEUTICAL INDUSTRIES LTD-2024R1-455612

PATIENT
  Age: 46 Year
  Sex: Male

DRUGS (3)
  1. AMPHOTERICIN B [Suspect]
     Active Substance: AMPHOTERICIN B
     Indication: Pulmonary mucormycosis
     Route: 042
  2. MICAFUNGIN [Suspect]
     Active Substance: MICAFUNGIN SODIUM
     Indication: Pulmonary mucormycosis
     Route: 042
  3. vancomycin/meropenem [Concomitant]
     Indication: Pulmonary mucormycosis
     Route: 065

REACTIONS (2)
  - Haemoptysis [Fatal]
  - Pulseless electrical activity [Fatal]
